FAERS Safety Report 6871008-1 (Version None)
Quarter: 2010Q2

REPORT INFORMATION
  Report Type: 
  Country: None (occurrence: None)
  Receive Date: 20100610
  Receipt Date: 20100324
  Transmission Date: 20101027
  Serious: No
  Sender: FDA-Public Use
  Company Number: 2010SP018552

PATIENT
  Age: 66 Year
  Sex: Female
  Weight: 92.0802 kg

DRUGS (12)
  1. SAPHRIS [Suspect]
     Indication: MANIA
     Dates: start: 20100201
  2. VYTORIN [Concomitant]
  3. DOXYCYCLINE [Concomitant]
  4. ARIPIPRAZOLE [Concomitant]
  5. SINGULAIR [Concomitant]
  6. DILANTIN [Concomitant]
  7. LISINOPRIL [Concomitant]
  8. ZOLPIDEM [Concomitant]
  9. METFORMIN HCL [Concomitant]
  10. NASONEX [Concomitant]
  11. LAMICTAL [Concomitant]
  12. COMBIVENT [Concomitant]

REACTIONS (3)
  - CONSTIPATION [None]
  - INAPPROPRIATE SCHEDULE OF DRUG ADMINISTRATION [None]
  - UNDERDOSE [None]
